FAERS Safety Report 4605944-3 (Version None)
Quarter: 2005Q2

REPORT INFORMATION
  Report Type: 
  Country: None (occurrence: None)
  Receive Date: 20050303
  Receipt Date: 20041129
  Transmission Date: 20051028
  Serious: No
  Sender: FDA-Public Use
  Company Number: 200421077BWH

PATIENT
  Age: 57 Year
  Sex: Male

DRUGS (5)
  1. LEVITRA [Suspect]
     Indication: ERECTILE DYSFUNCTION
     Dosage: 10 MG, TOTAL DAILY, ORAL
     Route: 048
     Dates: start: 20041124
  2. AVANDAMET [Concomitant]
  3. LOPRESSOR [Concomitant]
  4. VASOTEC [Concomitant]
  5. NOVOLOG [Concomitant]

REACTIONS (1)
  - HEART RATE INCREASED [None]
